FAERS Safety Report 16718146 (Version 3)
Quarter: 2019Q3

REPORT INFORMATION
  Report Type: Spontaneous
  Country: FR (occurrence: FR)
  Receive Date: 20190819
  Receipt Date: 20190906
  Transmission Date: 20191005
  Serious: Yes (Other)
  Sender: FDA-Public Use
  Company Number: FR-UCBSA-2019032544

PATIENT
  Sex: Male
  Weight: 85 kg

DRUGS (3)
  1. EDEX [Suspect]
     Active Substance: ALPROSTADIL
     Indication: PRODUCT USED FOR UNKNOWN INDICATION
     Dosage: 5 MICROGRAM, UNK
     Dates: start: 20190722
  2. EDEX [Suspect]
     Active Substance: ALPROSTADIL
     Dosage: 10 MICROGRAM, UNK
     Dates: start: 20190807
  3. EDEX [Suspect]
     Active Substance: ALPROSTADIL
     Dosage: 0.500 UNK, UNK

REACTIONS (4)
  - Stress [Not Recovered/Not Resolved]
  - Sexual dysfunction [Not Recovered/Not Resolved]
  - Erection increased [Not Recovered/Not Resolved]
  - Pain [Not Recovered/Not Resolved]
